FAERS Safety Report 25297621 (Version 1)
Quarter: 2025Q2

REPORT INFORMATION
  Report Type: Spontaneous
  Country: ES (occurrence: ES)
  Receive Date: 20250511
  Receipt Date: 20250511
  Transmission Date: 20250716
  Serious: Yes (Death, Other)
  Sender: ORGANON
  Company Number: ES-ORGANON-O2503ESP000475

PATIENT
  Age: 46 Year
  Sex: Male

DRUGS (1)
  1. FINASTERIDE [Suspect]
     Active Substance: FINASTERIDE
     Dates: start: 2024

REACTIONS (9)
  - Completed suicide [Fatal]
  - Erectile dysfunction [Not Recovered/Not Resolved]
  - Fall [Unknown]
  - Wound [Unknown]
  - Insomnia [Not Recovered/Not Resolved]
  - Disturbance in attention [Not Recovered/Not Resolved]
  - Depression [Not Recovered/Not Resolved]
  - Illusion [Not Recovered/Not Resolved]
  - Post 5-alpha-reductase inhibitor syndrome [Not Recovered/Not Resolved]

NARRATIVE: CASE EVENT DATE: 20240101
